FAERS Safety Report 8788645 (Version 2)
Quarter: 2012Q4

REPORT INFORMATION
  Report Type: 
  Country: JP (occurrence: JP)
  Receive Date: 20120917
  Receipt Date: 20120924
  Transmission Date: 20130627
  Serious: No
  Sender: FDA-Public Use
  Company Number: JP-JNJFOC-20120903811

PATIENT
  Sex: Male

DRUGS (6)
  1. ONEDURO [Suspect]
     Indication: CANCER PAIN
     Dosage: 25 ug/hr and 12.5 ug/hr
     Route: 062
     Dates: start: 20120831
  2. OXYCODONE HYDROCHLORIDE [Concomitant]
     Indication: PRODUCT USED FOR UNKNOWN INDICATION
     Route: 048
     Dates: start: 20120831
  3. FAMOTIDINE [Concomitant]
     Route: 048
     Dates: start: 20120831
  4. FAMOTIDINE [Concomitant]
     Route: 048
     Dates: start: 20120831
  5. MUCODYNE [Concomitant]
     Route: 048
     Dates: start: 20120831
  6. CARBOCISTEINE [Concomitant]
     Route: 048
     Dates: start: 20120831

REACTIONS (2)
  - Somnolence [Unknown]
  - Wrong technique in drug usage process [Unknown]
